FAERS Safety Report 5202631-8 (Version None)
Quarter: 2006Q4

REPORT INFORMATION
  Report Type: 
  Country: None (occurrence: None)
  Receive Date: 20061018
  Receipt Date: 20050725
  Transmission Date: 20070319
  Serious: Yes (Hospitalization, Other)
  Sender: FDA-Public Use
  Company Number: PHEH2005US08239

PATIENT
  Age: 39 Year
  Sex: Female

DRUGS (1)
  1. ZOMETA [Suspect]
     Indication: BREAST CANCER METASTATIC
     Dosage: 4 MG, INTRAVENOUS
     Route: 042
     Dates: start: 20050707

REACTIONS (2)
  - HYPOCALCAEMIA [None]
  - VOMITING [None]
